FAERS Safety Report 23789903 (Version 1)
Quarter: 2024Q2

REPORT INFORMATION
  Report Type: Spontaneous
  Country: PL (occurrence: PL)
  Receive Date: 20240426
  Receipt Date: 20240426
  Transmission Date: 20240716
  Serious: Yes (Other)
  Sender: FDA-Public Use
  Company Number: PL-002147023-NVSC2024PL083476

PATIENT

DRUGS (3)
  1. RUXOLITINIB [Suspect]
     Active Substance: RUXOLITINIB
     Indication: Product used for unknown indication
     Dosage: 5 MG (2X5MG)
     Route: 065
     Dates: start: 202102
  2. METHOTREXATE SODIUM [Concomitant]
     Active Substance: METHOTREXATE SODIUM
     Indication: Product used for unknown indication
     Dosage: UNK
     Route: 065
     Dates: start: 202009
  3. CYCLOSPORINE [Concomitant]
     Active Substance: CYCLOSPORINE
     Indication: Dissociative disorder
     Dosage: UNK
     Route: 065
     Dates: start: 202103

REACTIONS (7)
  - Osteonecrosis [Unknown]
  - COVID-19 [Unknown]
  - Graft versus host disease [Recovering/Resolving]
  - C-reactive protein increased [Unknown]
  - Dyspnoea [Unknown]
  - Infection [Unknown]
  - Cough [Unknown]

NARRATIVE: CASE EVENT DATE: 20210501
